FAERS Safety Report 13597057 (Version 3)
Quarter: 2017Q3

REPORT INFORMATION
  Report Type: Report from Study
  Country: JP (occurrence: JP)
  Receive Date: 20170531
  Receipt Date: 20170825
  Transmission Date: 20171127
  Serious: Yes (Hospitalization, Other)
  Sender: FDA-Public Use
  Company Number: PHJP2016JP016701

PATIENT
  Age: 70 Year
  Sex: Male

DRUGS (6)
  1. JAKAVI TABLETS [Suspect]
     Active Substance: RUXOLITINIB
     Indication: MYELOFIBROSIS
     Dosage: 10 MG, BID
     Route: 048
     Dates: start: 20160128, end: 20160317
  2. JAKAVI TABLETS [Suspect]
     Active Substance: RUXOLITINIB
     Dosage: 5 MG, BID
     Route: 048
     Dates: start: 20160318, end: 20160331
  3. EXJADE [Suspect]
     Active Substance: DEFERASIROX
     Indication: IRON OVERLOAD
     Dosage: 500 MG, QD
     Route: 048
     Dates: start: 20160428
  4. JAKAVI TABLETS [Suspect]
     Active Substance: RUXOLITINIB
     Dosage: 5 MG, BID
     Route: 048
     Dates: start: 20160825, end: 20160914
  5. JAKAVI TABLETS [Suspect]
     Active Substance: RUXOLITINIB
     Dosage: 10 MG, BID
     Route: 048
     Dates: start: 20160915, end: 20170510
  6. JAKAVI TABLETS [Suspect]
     Active Substance: RUXOLITINIB
     Dosage: 10 MG, BID
     Route: 048
     Dates: start: 20160401, end: 20160824

REACTIONS (9)
  - Pneumonia [Recovered/Resolved]
  - Neutrophil count decreased [Unknown]
  - Platelet count decreased [Recovering/Resolving]
  - Serum ferritin increased [Recovering/Resolving]
  - Haemoglobin decreased [Recovered/Resolved]
  - White blood cell count decreased [Unknown]
  - Blood creatinine increased [Recovering/Resolving]
  - Platelet count decreased [Recovered/Resolved]
  - Renal impairment [Recovering/Resolving]

NARRATIVE: CASE EVENT DATE: 20160317
